FAERS Safety Report 5323967-6 (Version None)
Quarter: 2007Q2

REPORT INFORMATION
  Report Type: 
  Country: None (occurrence: None)
  Receive Date: 20070221
  Receipt Date: 20060207
  Transmission Date: 20071010
  Serious: Yes (Other)
  Sender: FDA-Public Use
  Company Number: PHEH2006US01633

PATIENT
  Age: 67 Year
  Sex: Male
  Weight: 97.5 kg

DRUGS (2)
  1. DIOVAN [Suspect]
     Indication: HYPERTENSION
     Dosage: 80 MG, QD, ORAL
     Route: 048
     Dates: start: 20020101
  2. LIPITOR [Concomitant]

REACTIONS (2)
  - ANGIOEDEMA [None]
  - SWELLING FACE [None]
